FAERS Safety Report 5012058-X (Version None)
Quarter: 2006Q2

REPORT INFORMATION
  Report Type: 
  Country: None (occurrence: None)
  Receive Date: 20060526
  Receipt Date: 20060509
  Transmission Date: 20061013
  Serious: Yes (Other)
  Sender: FDA-Public Use
  Company Number: AU-GLAXOSMITHKLINE-B0424077A

PATIENT
  Age: 64 Year
  Sex: Male
  Weight: 98 kg

DRUGS (5)
  1. AVANDIA [Suspect]
     Dosage: 4MG PER DAY
     Route: 048
     Dates: start: 20051101
  2. ZOCOR [Concomitant]
  3. DIAMICRON [Concomitant]
  4. ATACAND [Concomitant]
  5. ACIMAX [Concomitant]

REACTIONS (4)
  - ANAEMIA [None]
  - LIVER FUNCTION TEST ABNORMAL [None]
  - RASH [None]
  - YELLOW SKIN [None]
